FAERS Safety Report 5997139-6 (Version None)
Quarter: 2008Q4

REPORT INFORMATION
  Report Type: 
  Country: None (occurrence: None)
  Receive Date: 20081212
  Receipt Date: 20081209
  Transmission Date: 20090506
  Serious: Yes (Death)
  Sender: FDA-Public Use
  Company Number: UG-GILEAD-2008-0019433

PATIENT
  Age: 51 Year
  Sex: Female
  Weight: 85 kg

DRUGS (13)
  1. EMTRICITABINE/TENOFOVIR DISOPROXIL FUMARATE [Suspect]
     Indication: HIV INFECTION
     Route: 048
     Dates: start: 20080612, end: 20080925
  2. LOPINAVIR AND RITONAVIR [Concomitant]
     Indication: HIV INFECTION
     Route: 048
     Dates: start: 20080612, end: 20080925
  3. MEROPENEM [Concomitant]
  4. METRONIDAZOLE [Concomitant]
  5. LOPERAMIDE HCL [Concomitant]
  6. FLUCONAZOLE [Concomitant]
  7. OMEPRAZOLE [Concomitant]
  8. ESOMEPRAZOLE MAGNESIUM [Concomitant]
  9. METOCLOPRAMIDE [Concomitant]
  10. ACYCLOVIR [Concomitant]
  11. FERROUS SULFATE TAB [Concomitant]
  12. FOLATE [Concomitant]
  13. ACETAMINOPHEN [Concomitant]

REACTIONS (1)
  - GASTROENTERITIS [None]
